FAERS Safety Report 5861253-6 (Version None)
Quarter: 2008Q3

REPORT INFORMATION
  Report Type: 
  Country: None (occurrence: None)
  Receive Date: 20080827
  Receipt Date: 20080402
  Transmission Date: 20090109
  Serious: No
  Sender: FDA-Public Use
  Company Number: US-ABBOTT-08P-163-0445148-00

PATIENT
  Sex: Female
  Weight: 73.548 kg

DRUGS (5)
  1. COATED PDS [Suspect]
     Indication: BLOOD CHOLESTEROL INCREASED
     Dosage: 2- 500MG TABS AT NIGHT
     Route: 048
     Dates: start: 20070101, end: 20071201
  2. COATED PDS [Suspect]
     Route: 048
     Dates: start: 20071201
  3. VITAMIN TAB [Concomitant]
     Indication: DRUG USE FOR UNKNOWN INDICATION
  4. ACETYLSALICYLIC ACID SRT [Concomitant]
     Indication: ANTICOAGULANT THERAPY
  5. BLOOD PRESSURE MEDICATION [Concomitant]
     Indication: HYPERTENSION

REACTIONS (4)
  - FLUSHING [None]
  - INSOMNIA [None]
  - LACRIMATION INCREASED [None]
  - PARAESTHESIA [None]
